FAERS Safety Report 10248980 (Version 1)
Quarter: 2014Q2

REPORT INFORMATION
  Report Type: Spontaneous
  Country: GB (occurrence: None)
  Receive Date: 20140618
  Receipt Date: 20140618
  Transmission Date: 20141212
  Serious: Yes (Disabling)
  Sender: FDA-Public Use
  Company Number: AUR-APL-2014-06380

PATIENT
  Age: 6 Year
  Sex: Male
  Weight: 40 kg

DRUGS (2)
  1. MONTELUKAST [Suspect]
     Indication: PRODUCT USED FOR UNKNOWN INDICATION
     Dates: start: 20140221, end: 20140321
  2. SALBUTAMOL (SALBUTAMOL) [Concomitant]

REACTIONS (2)
  - Depressed mood [None]
  - Panic attack [None]
